FAERS Safety Report 5916202-9 (Version None)
Quarter: 2008Q4

REPORT INFORMATION
  Report Type: 
  Country: None (occurrence: None)
  Receive Date: 20081013
  Receipt Date: 20081003
  Transmission Date: 20090506
  Serious: Yes (Hospitalization)
  Sender: FDA-Public Use
  Company Number: GB-ROCHE-586129

PATIENT
  Sex: Female
  Weight: 88 kg

DRUGS (7)
  1. ORLISTAT [Suspect]
     Indication: OBESITY
     Route: 048
     Dates: start: 20080723
  2. ASPIRIN [Concomitant]
     Indication: ANTICOAGULANT THERAPY
     Route: 048
  3. AMLODIPINE [Concomitant]
     Indication: BLOOD PRESSURE
     Route: 048
  4. RAMIPRIL [Concomitant]
     Indication: BLOOD PRESSURE
     Route: 048
  5. BENDROFLUAZIDE [Concomitant]
     Dosage: REOPRTED AS BENDROFLUROZIDE
     Route: 048
  6. ACETAMINOPHEN [Concomitant]
     Indication: PAIN
     Route: 048
  7. LANSOPRAZOLE [Concomitant]
     Dosage: INDICATION REPORTED AS GASTRIC STOMACH
     Route: 048

REACTIONS (1)
  - ANGINA PECTORIS [None]
